FAERS Safety Report 26103684 (Version 1)
Quarter: 2025Q4

REPORT INFORMATION
  Report Type: Spontaneous
  Country: US (occurrence: US)
  Receive Date: 20251129
  Receipt Date: 20251129
  Transmission Date: 20260117
  Serious: No
  Sender: ALEXION PHARMACEUTICALS
  Company Number: 202511NAM026051US

PATIENT
  Sex: Male

DRUGS (2)
  1. BRILINTA [Interacting]
     Active Substance: TICAGRELOR
     Route: 065
  2. RIFAMPIN [Interacting]
     Active Substance: RIFAMPIN
     Route: 065

REACTIONS (1)
  - Drug interaction [Unknown]
